FAERS Safety Report 9100859 (Version 1)
Quarter: 2013Q1

REPORT INFORMATION
  Report Type: Spontaneous
  Country: ES (occurrence: ES)
  Receive Date: 20130215
  Receipt Date: 20130215
  Transmission Date: 20140127
  Serious: Yes (Hospitalization)
  Sender: FDA-Public Use
  Company Number: ES-SANOFI-AVENTIS-2013SA011526

PATIENT
  Age: 40 Year
  Sex: Female

DRUGS (5)
  1. RIFATER [Suspect]
     Indication: TUBERCULOSIS
     Route: 048
     Dates: start: 20120731, end: 20120817
  2. ETAMBUTOL [Suspect]
     Indication: TUBERCULOSIS
     Route: 048
     Dates: start: 20120731, end: 20120817
  3. VITAMINA B6 ZENTIVA [Concomitant]
     Indication: PROPHYLAXIS
     Route: 048
     Dates: start: 20120731, end: 20120801
  4. PARACETAMOL [Concomitant]
     Indication: PAIN
     Route: 048
     Dates: start: 20120731, end: 20120817
  5. CODEINE [Concomitant]
     Indication: COUGH
     Route: 048
     Dates: start: 20120731, end: 20120806

REACTIONS (6)
  - Drug reaction with eosinophilia and systemic symptoms [Unknown]
  - Rash [Unknown]
  - Eosinophilia [Unknown]
  - Pyrexia [Unknown]
  - Hepatitis [Unknown]
  - Natural killer cell count increased [Unknown]
